FAERS Safety Report 5855604-6 (Version None)
Quarter: 2008Q3

REPORT INFORMATION
  Report Type: 
  Country: None (occurrence: None)
  Receive Date: 20080821
  Receipt Date: 20080806
  Transmission Date: 20090109
  Serious: Yes (Hospitalization)
  Sender: FDA-Public Use
  Company Number: 237493J08USA

PATIENT
  Age: 45 Year
  Sex: Female
  Weight: 84.8226 kg

DRUGS (10)
  1. REBIF [Suspect]
     Indication: MULTIPLE SCLEROSIS
     Dosage: 44 MCG, 3 IN 1 WEEKS,  SUBCUTANEOUS
     Route: 058
     Dates: start: 20030121, end: 20080715
  2. EVISTA [Concomitant]
  3. SYNTHROID [Concomitant]
  4. ALLEGRA [Concomitant]
  5. FLOVENT [Concomitant]
  6. NASACORT [Concomitant]
  7. ZOCOR [Concomitant]
  8. VITAMIN B12 [Concomitant]
  9. VITAMIN D [Concomitant]
  10. MULTIVITAMIN 9MULTIVITAMIN/00831701/) [Concomitant]

REACTIONS (4)
  - DIVERTICULITIS [None]
  - ESCHERICHIA INFECTION [None]
  - INCISIONAL HERNIA [None]
  - WOUND INFECTION BACTERIAL [None]
